FAERS Safety Report 26090383 (Version 1)
Quarter: 2025Q4

REPORT INFORMATION
  Report Type: Spontaneous
  Country: EU (occurrence: EU)
  Receive Date: 20251126
  Receipt Date: 20251126
  Transmission Date: 20260118
  Serious: Yes (Death)
  Sender: SANDOZ
  Company Number: EU-SA-2025SA338822

PATIENT

DRUGS (4)
  1. LAPINE T-LYMPHOCYTE IMMUNE GLOBULIN [Suspect]
     Active Substance: LAPINE T-LYMPHOCYTE IMMUNE GLOBULIN
     Indication: Sickle cell disease
     Dosage: UNK
     Route: 065
  2. CYCLOPHOSPHAMIDE [Suspect]
     Active Substance: CYCLOPHOSPHAMIDE
     Indication: Sickle cell disease
     Dosage: UNK
     Route: 065
  3. FLUDARABINE PHOSPHATE [Suspect]
     Active Substance: FLUDARABINE PHOSPHATE
     Indication: Sickle cell disease
     Dosage: UNK
     Route: 065
  4. THIOTEPA [Suspect]
     Active Substance: THIOTEPA
     Indication: Sickle cell disease
     Dosage: UNK
     Route: 065

REACTIONS (2)
  - Infection [Fatal]
  - Off label use [Unknown]
